FAERS Safety Report 7537571-2 (Version None)
Quarter: 2011Q2

REPORT INFORMATION
  Report Type: 
  Country: None (occurrence: None)
  Receive Date: 20110603
  Receipt Date: 20110518
  Transmission Date: 20111010
  Serious: Yes (Hospitalization, Other)
  Sender: FDA-Public Use
  Company Number: 2011MA006138

PATIENT
  Age: 1 Day
  Sex: Male
  Weight: 3.38 kg

DRUGS (1)
  1. FLUOXETINE [Suspect]
     Indication: DEPRESSION
     Dosage: 40 MG, OD,

REACTIONS (14)
  - MUSCLE SPASTICITY [None]
  - HYPERTONIA NEONATAL [None]
  - DYSKINESIA [None]
  - OXYGEN SATURATION DECREASED [None]
  - MUSCLE TWITCHING [None]
  - IRRITABILITY [None]
  - CONGENITAL FLOPPY INFANT [None]
  - POSTURE ABNORMAL [None]
  - CEREBRAL DISORDER [None]
  - OPISTHOTONUS [None]
  - NEUROLOGICAL SYMPTOM [None]
  - MECHANICAL VENTILATION [None]
  - RESPIRATORY DISORDER [None]
  - FORCEPS DELIVERY [None]
